FAERS Safety Report 9500174 (Version 2)
Quarter: 2013Q4

REPORT INFORMATION
  Report Type: Report from Study
  Country: BR (occurrence: BR)
  Receive Date: 20130905
  Receipt Date: 20131004
  Transmission Date: 20140711
  Serious: Yes (Life-Threatening, Other)
  Sender: FDA-Public Use
  Company Number: PHHY2013BR097034

PATIENT
  Sex: Female
  Weight: 58 kg

DRUGS (5)
  1. ACLASTA [Suspect]
     Indication: OSTEOPOROSIS
     Dosage: 5 MG, UNK
     Route: 042
     Dates: start: 201305
  2. ATENOLOL [Concomitant]
     Dosage: 25 MG, UNK
     Dates: start: 1993
  3. CRESTOR [Concomitant]
     Dosage: 10 MG, UNK
     Dates: start: 2001
  4. INSULIN [Concomitant]
     Dosage: UNK UKN, UNK
     Dates: start: 1993
  5. CALCIUM D3                         /00944201/ [Concomitant]
     Dosage: UNK UKN, UNK
     Dates: start: 2013

REACTIONS (4)
  - Feeling abnormal [Recovering/Resolving]
  - Ear pain [Recovering/Resolving]
  - Musculoskeletal pain [Recovering/Resolving]
  - Pain in extremity [Recovering/Resolving]
